FAERS Safety Report 9782732 (Version 1)
Quarter: 2013Q4

REPORT INFORMATION
  Report Type: Spontaneous
  Country: US (occurrence: None)
  Receive Date: 20131224
  Receipt Date: 20131224
  Transmission Date: 20140711
  Serious: No
  Sender: FDA-Public Use
  Company Number: None

PATIENT
  Age: 66 Year
  Sex: Male
  Weight: 88 kg

DRUGS (2)
  1. MONTELUKAST SODIUM [Suspect]
     Indication: ASTHMA
     Dosage: 1 PILL ONCE DAILY
     Route: 048
     Dates: start: 20131104, end: 20131129
  2. MONTELUKAST SODIUM [Suspect]
     Indication: WHEEZING
     Dosage: 1 PILL ONCE DAILY
     Route: 048
     Dates: start: 20131104, end: 20131129

REACTIONS (3)
  - Drug ineffective [None]
  - Wheezing [None]
  - Product substitution issue [None]
